FAERS Safety Report 5569843-5 (Version None)
Quarter: 2007Q4

REPORT INFORMATION
  Report Type: 
  Country: None (occurrence: None)
  Receive Date: 20071220
  Receipt Date: 20071210
  Transmission Date: 20080405
  Serious: Yes (Hospitalization, Other)
  Sender: FDA-Public Use
  Company Number: BE-ABBOTT-07P-013-0361570-00

PATIENT
  Sex: Female

DRUGS (6)
  1. HUMIRA [Suspect]
     Indication: RHEUMATOID ARTHRITIS
     Dates: start: 20050823, end: 20070315
  2. LEFLUNOMIDE [Concomitant]
     Indication: RHEUMATOID ARTHRITIS
  3. METHYLPREDNISOLONE [Concomitant]
     Indication: RHEUMATOID ARTHRITIS
  4. INDOCID SUPP [Concomitant]
     Indication: RHEUMATOID ARTHRITIS
  5. LORMETAZEPAM [Concomitant]
     Indication: DRUG USE FOR UNKNOWN INDICATION
  6. PAROXETINE [Concomitant]
     Indication: DRUG USE FOR UNKNOWN INDICATION

REACTIONS (38)
  - ACUTE RESPIRATORY DISTRESS SYNDROME [None]
  - ANAL HAEMORRHAGE [None]
  - ARTERIOSCLEROSIS [None]
  - ARTHRITIS [None]
  - BACK PAIN [None]
  - BACTERIAL INFECTION [None]
  - BEDRIDDEN [None]
  - CANDIDIASIS [None]
  - CAPILLARY LEAK SYNDROME [None]
  - CARDIAC FAILURE [None]
  - CELLULITIS [None]
  - DECUBITUS ULCER [None]
  - DIABETES MELLITUS [None]
  - DYSPNOEA [None]
  - ENTEROCOCCAL INFECTION [None]
  - EXTRADURAL ABSCESS [None]
  - GASTROENTERITIS ESCHERICHIA COLI [None]
  - HAEMOGLOBIN DECREASED [None]
  - HERPES ZOSTER [None]
  - HYPOALBUMINAEMIA [None]
  - HYPOPROTEINAEMIA [None]
  - INFECTION [None]
  - ISCHAEMIA [None]
  - LARGE INTESTINAL ULCER [None]
  - LEFT VENTRICULAR DYSFUNCTION [None]
  - LIVER FUNCTION TEST ABNORMAL [None]
  - MALNUTRITION [None]
  - MULTIPLE-DRUG RESISTANCE [None]
  - MUSCLE ATROPHY [None]
  - MUSCULAR WEAKNESS [None]
  - PLEURAL EFFUSION [None]
  - REFLUX OESOPHAGITIS [None]
  - RIGHT VENTRICULAR FAILURE [None]
  - SCOLIOSIS [None]
  - SEPSIS [None]
  - SEPTIC SHOCK [None]
  - VISUAL ACUITY REDUCED [None]
  - WOUND DEHISCENCE [None]
